FAERS Safety Report 9268419 (Version 1)
Quarter: 2013Q2

REPORT INFORMATION
  Report Type: Spontaneous
  Country: US (occurrence: US)
  Receive Date: 20130502
  Receipt Date: 20130502
  Transmission Date: 20140414
  Serious: Yes (Other)
  Sender: FDA-Public Use
  Company Number: US-ALEXION-A201202191

PATIENT
  Age: 32 Year
  Sex: Female
  Weight: 76 kg

DRUGS (6)
  1. SOLIRIS 300MG [Suspect]
     Indication: PAROXYSMAL NOCTURNAL HAEMOGLOBINURIA
     Dosage: 900 MG, Q2W
     Route: 042
     Dates: start: 20121023
  2. HYDROMORPHONE HYDROCHLORIDE [Concomitant]
     Dosage: 2 MG, PRN Q4H
  3. LORAZEPAM [Concomitant]
     Dosage: 1 MG, PRN TID
  4. MS CONTIN [Concomitant]
     Dosage: 30 MG, TID
  5. SUMATRIPTAN SUCCINATE [Concomitant]
     Dosage: 50 MG, UNK
  6. ZOFRAN [Concomitant]
     Dosage: 8 MG, TID

REACTIONS (3)
  - Platelet count decreased [Not Recovered/Not Resolved]
  - Haemoglobin decreased [Not Recovered/Not Resolved]
  - Haematocrit decreased [Not Recovered/Not Resolved]
